FAERS Safety Report 25562097 (Version 2)
Quarter: 2025Q4

REPORT INFORMATION
  Report Type: Spontaneous
  Country: JP (occurrence: JP)
  Receive Date: 20250716
  Receipt Date: 20251104
  Transmission Date: 20260117
  Serious: Yes (Other)
  Sender: MERCK SHARP & DOHME LLC
  Company Number: JP-009507513-2287404

PATIENT
  Age: 56 Year
  Sex: Male
  Weight: 56 kg

DRUGS (12)
  1. KEYTRUDA [Suspect]
     Active Substance: PEMBROLIZUMAB
     Indication: Lung neoplasm malignant
     Dosage: 200 MG, STRENGTH: 100 MG
     Route: 041
     Dates: start: 20250328
  2. Aprepitant capsule set [Concomitant]
     Route: 048
     Dates: start: 20250328
  3. Palonosetron I.V.infusion bag 0.75mg/50mL [Concomitant]
     Route: 041
     Dates: start: 20250328
  4. DEXART injection 6.6mg/2mL [Concomitant]
     Route: 041
     Dates: start: 20250328
  5. Abraxane I.V. Infusion 450 mg ? 150 mg ? 50 mg [Concomitant]
     Route: 041
     Dates: start: 20250328
  6. Insulin Lispro BS Injection HU Sanofi [Concomitant]
     Route: 058
  7. Insulin Glargine BS Injection Lilly [Concomitant]
     Route: 058
  8. Trazenta Tablets 5mg [Concomitant]
     Route: 048
  9. PREDONINE [Concomitant]
     Active Substance: PREDNISOLONE
     Route: 048
  10. Rabeprazole Sodium Tablets 10mg Chemiphar [Concomitant]
     Route: 048
  11. DAIPHEN Tablets [Concomitant]
     Route: 048
  12. CARBOPLATIN Intravenous Infusion 450mg?150mg?50mg [Concomitant]
     Route: 041
     Dates: start: 20250328

REACTIONS (3)
  - Immune-mediated adverse reaction [Unknown]
  - Pemphigus [Unknown]
  - Toxic epidermal necrolysis [Unknown]

NARRATIVE: CASE EVENT DATE: 20250412
